FAERS Safety Report 9147338 (Version 1)
Quarter: 2013Q1

REPORT INFORMATION
  Report Type: Spontaneous
  Country: CA (occurrence: CA)
  Receive Date: 20130307
  Receipt Date: 20130307
  Transmission Date: 20140127
  Serious: Yes (Hospitalization)
  Sender: FDA-Public Use
  Company Number: CA-GLAXOSMITHKLINE-A1014053A

PATIENT
  Sex: Female

DRUGS (2)
  1. TYKERB [Suspect]
     Indication: BREAST CANCER METASTATIC
     Route: 065
  2. CAPECITABINE [Suspect]
     Indication: PRODUCT USED FOR UNKNOWN INDICATION
     Route: 065

REACTIONS (3)
  - Breast cancer metastatic [Unknown]
  - Colitis [Recovered/Resolved]
  - Enteritis [Recovered/Resolved]
